FAERS Safety Report 10084503 (Version 1)
Quarter: 2014Q2

REPORT INFORMATION
  Report Type: Spontaneous
  Country: JP (occurrence: JP)
  Receive Date: 20140417
  Receipt Date: 20140417
  Transmission Date: 20141212
  Serious: Yes (Hospitalization)
  Sender: FDA-Public Use
  Company Number: PHHY2014JP045924

PATIENT
  Sex: Male
  Weight: 60 kg

DRUGS (1)
  1. NEORAL [Suspect]
     Indication: SKIN DISORDER
     Dosage: 100 MG, QD
     Route: 048

REACTIONS (2)
  - Cerebral infarction [Unknown]
  - Incorrect dose administered [Unknown]
